FAERS Safety Report 23073598 (Version 3)
Quarter: 2023Q4

REPORT INFORMATION
  Report Type: Report from Study
  Country: CH (occurrence: CH)
  Receive Date: 20231017
  Receipt Date: 20231103
  Transmission Date: 20240110
  Serious: Yes (Hospitalization, Other)
  Sender: FDA-Public Use
  Company Number: CH-002147023-NVSC2022CH182732

PATIENT
  Age: 89 Year
  Sex: Female

DRUGS (5)
  1. KISQALI [Suspect]
     Active Substance: RIBOCICLIB
     Indication: Breast cancer
     Dosage: 400 MG (3 WEEKS ON 1 WEEK OFF)
     Route: 048
     Dates: start: 20220704, end: 20220801
  2. KISQALI [Suspect]
     Active Substance: RIBOCICLIB
     Dosage: 200/400 (ALTERNATED)
     Route: 048
     Dates: start: 20220811
  3. KISQALI [Suspect]
     Active Substance: RIBOCICLIB
     Dosage: 300 MG
     Route: 048
  4. FASLODEX [Suspect]
     Active Substance: FULVESTRANT
     Indication: Breast cancer
     Dosage: 500 MG
     Route: 065
     Dates: start: 20220704, end: 20230801
  5. FASLODEX [Suspect]
     Active Substance: FULVESTRANT
     Dosage: 500 MG
     Route: 065
     Dates: start: 20220810

REACTIONS (10)
  - Delirium [Recovered/Resolved]
  - Neutrophil count decreased [Recovered/Resolved]
  - White blood cell count decreased [Not Recovered/Not Resolved]
  - Anaemia [Recovered/Resolved]
  - Fatigue [Recovering/Resolving]
  - Memory impairment [Recovered/Resolved]
  - Dizziness [Not Recovered/Not Resolved]
  - Rash [Unknown]
  - Dry skin [Unknown]
  - Anaemia [Recovering/Resolving]

NARRATIVE: CASE EVENT DATE: 20220802
